FAERS Safety Report 13547946 (Version 4)
Quarter: 2017Q3

REPORT INFORMATION
  Report Type: Report from Study
  Country: FR (occurrence: FR)
  Receive Date: 20170516
  Receipt Date: 20170818
  Transmission Date: 20171127
  Serious: Yes (Death, Hospitalization, Other)
  Sender: FDA-Public Use
  Company Number: FR-BRISTOL-MYERS SQUIBB COMPANY-BMS-2017-007094

PATIENT
  Age: 66 Year
  Sex: Male
  Weight: 57 kg

DRUGS (6)
  1. FORLAX [Concomitant]
     Active Substance: POLYETHYLENE GLYCOL 4000
     Indication: CONSTIPATION
     Dosage: 1 DF, BID
     Route: 065
     Dates: start: 20140622, end: 201508
  2. ENTECAVIR. [Suspect]
     Active Substance: ENTECAVIR
     Indication: HEPATITIS B
     Dosage: UNK
     Route: 065
     Dates: start: 2014, end: 20150428
  3. MOPRAL                             /00661201/ [Concomitant]
     Active Substance: OMEPRAZOLE SODIUM
     Indication: GASTROOESOPHAGEAL REFLUX DISEASE
     Dosage: 40 MG, QD
     Route: 065
     Dates: start: 20140622, end: 201508
  4. LASILIX                            /00032601/ [Concomitant]
     Active Substance: FUROSEMIDE
     Indication: OEDEMA
     Dosage: 40 MG, QD
     Route: 065
     Dates: end: 201508
  5. LANTUS [Concomitant]
     Active Substance: INSULIN GLARGINE
     Indication: DIABETES MELLITUS
     Dosage: 10 UNIT, BID
     Route: 065
     Dates: start: 20140622
  6. AMLOR [Concomitant]
     Active Substance: AMLODIPINE BESYLATE
     Indication: HYPERTENSION
     Dosage: 10 MG, QD
     Route: 065
     Dates: start: 20140622, end: 201508

REACTIONS (15)
  - Hepatocellular carcinoma [Unknown]
  - Anaemia [Not Recovered/Not Resolved]
  - Viral diarrhoea [Unknown]
  - General physical health deterioration [Fatal]
  - Hepatic cirrhosis [Unknown]
  - Pyrexia [Not Recovered/Not Resolved]
  - Pseudomonas aeruginosa meningitis [Unknown]
  - Sinusitis [Unknown]
  - Headache [Unknown]
  - IIIrd nerve paralysis [Unknown]
  - Weight decreased [Unknown]
  - Transfusion [Unknown]
  - Epistaxis [Unknown]
  - Optic nerve injury [Unknown]
  - Diplopia [Unknown]

NARRATIVE: CASE EVENT DATE: 20150108
